FAERS Safety Report 8534997-5 (Version None)
Quarter: 2012Q3

REPORT INFORMATION
  Report Type: 
  Country: None (occurrence: None)
  Receive Date: 20120724
  Receipt Date: 20120717
  Transmission Date: 20120928
  Serious: Yes (Hospitalization, Other)
  Sender: FDA-Public Use
  Company Number: FR-PFIZER INC-2012171508

PATIENT
  Age: 73 Year
  Sex: Male
  Weight: 89.8 kg

DRUGS (16)
  1. MORPHINE SULFATE [Concomitant]
     Dosage: 20 MG, 1X/DAY
     Dates: start: 20120511, end: 20120610
  2. PLAVIX [Concomitant]
     Dosage: UNK
     Dates: start: 20120511
  3. REPAGLINIDE [Concomitant]
     Dosage: 2 MG, 2X/DAY
     Dates: start: 20120511
  4. ASPIRIN [Concomitant]
     Dosage: UNK
     Dates: start: 20120512
  5. ATORVASTATIN [Concomitant]
     Dosage: 40 MG, 1X/DAY
     Dates: start: 20120511
  6. LOVENOX [Concomitant]
     Dosage: 6000 IU/ML, 2X/DAY
     Dates: start: 20120511, end: 20120522
  7. AMITRIPTYLINE HCL [Concomitant]
     Dosage: 25 MG, 1X/DAY
     Dates: start: 20120511
  8. PREVISCAN [Concomitant]
     Dosage: 20 MG, 1X/DAY
     Dates: start: 20120511
  9. LYRICA [Suspect]
     Dosage: 150 MG DAILY
     Route: 048
     Dates: start: 20120511, end: 20120604
  10. CIPROFLOXACIN HYDROCHLORIDE [Suspect]
     Indication: OSTEITIS
     Dosage: 750 MG, 2X/DAY
     Route: 048
     Dates: start: 20120425, end: 20120604
  11. RAMIPRIL [Concomitant]
     Dosage: UNK
  12. AMOXICILLIN TRIHYDRATE [Suspect]
     Indication: OSTEITIS
     Dosage: 8 G DAILY
     Route: 048
     Dates: start: 20120425, end: 20120606
  13. BISOPROLOL FUMARATE [Concomitant]
     Dosage: 2.5 MG DAILY
     Dates: start: 20120511
  14. ACUPAN [Concomitant]
     Dosage: 20MG/2ML, FIVE DOSAGE FORMS DAILY IF NECESSARY
     Dates: start: 20120511
  15. LANTUS [Concomitant]
     Dosage: UNK
     Dates: start: 20120511
  16. RABEPRAZOLE SODIUM [Concomitant]
     Dosage: UNK
     Dates: start: 20120512

REACTIONS (3)
  - RASH MACULO-PAPULAR [None]
  - PRURITUS [None]
  - MYCOSIS FUNGOIDES [None]
